FAERS Safety Report 7349609-6 (Version None)
Quarter: 2011Q1

REPORT INFORMATION
  Report Type: 
  Country: None (occurrence: None)
  Receive Date: 20110309
  Receipt Date: 20110309
  Transmission Date: 20110831
  Serious: Yes (Life-Threatening, Other)
  Sender: FDA-Public Use
  Company Number: None

PATIENT
  Age: 69 Year
  Sex: Female
  Weight: 62.5964 kg

DRUGS (2)
  1. AMBIEN [Suspect]
     Indication: DEPRESSION
     Dosage: 2 PILLS DAILY PO
     Route: 048
     Dates: start: 20101220, end: 20110218
  2. ZOLOFT [Suspect]
     Indication: RHEUMATOID ARTHRITIS
     Dosage: 1 OR 2 PILLS H.S. PO NEVER USED
     Route: 048

REACTIONS (7)
  - FLAT AFFECT [None]
  - IMPAIRED DRIVING ABILITY [None]
  - ASTHENIA [None]
  - INCONTINENCE [None]
  - DIPLOPIA [None]
  - SYNCOPE [None]
  - MEDICATION ERROR [None]
